FAERS Safety Report 4851988-6 (Version None)
Quarter: 2005Q4

REPORT INFORMATION
  Report Type: 
  Country: None (occurrence: None)
  Receive Date: 20051209
  Receipt Date: 20051209
  Transmission Date: 20060501
  Serious: Yes (Hospitalization)
  Sender: FDA-Public Use
  Company Number: None

PATIENT
  Sex: Female
  Weight: 65.8 kg

DRUGS (1)
  1. MAGNESIUM SULFATE IN WATER FOR INJECTION 40 MG/ML HOSPIRA [Suspect]
     Indication: PREGNANCY INDUCED HYPERTENSION
     Dosage: 40 MG/ML INFUSION TITRATED IV
     Route: 042
     Dates: start: 20051129

REACTIONS (2)
  - INCORRECT DRUG DOSAGE FORM ADMINISTERED [None]
  - THERAPY NON-RESPONDER [None]
